FAERS Safety Report 17852735 (Version 1)
Quarter: 2020Q2

REPORT INFORMATION
  Report Type: Spontaneous
  Country: US (occurrence: US)
  Receive Date: 20200602
  Receipt Date: 20200602
  Transmission Date: 20200714
  Serious: No
  Sender: FDA-Public Use
  Company Number: US-FOUNDATIONCONSUMERHC-2019-US-023596

PATIENT
  Age: 28 Year
  Sex: Female
  Weight: 104.33 kg

DRUGS (1)
  1. TAKE ACTION [Suspect]
     Active Substance: LEVONORGESTREL
     Indication: POST COITAL CONTRACEPTION
     Dosage: ONE PILL ONE TIME
     Route: 048
     Dates: start: 201906, end: 201906

REACTIONS (4)
  - Anxiety [Recovered/Resolved]
  - Vaginal haemorrhage [Recovered/Resolved]
  - Depression [Recovered/Resolved]
  - Endometrial hyperplasia [Unknown]

NARRATIVE: CASE EVENT DATE: 201908
